FAERS Safety Report 6035562-4 (Version None)
Quarter: 2009Q1

REPORT INFORMATION
  Report Type: 
  Country: None (occurrence: None)
  Receive Date: 20090112
  Receipt Date: 20090112
  Transmission Date: 20090719
  Serious: No
  Sender: FDA-Public Use
  Company Number: None

PATIENT
  Age: 76 Year
  Sex: Male

DRUGS (2)
  1. GLEEVEC [Suspect]
  2. TAXOL [Suspect]

REACTIONS (7)
  - BODY TEMPERATURE INCREASED [None]
  - CHEST DISCOMFORT [None]
  - CHILLS [None]
  - DIARRHOEA [None]
  - HYPERHIDROSIS [None]
  - NEUTROPENIA [None]
  - TACHYPNOEA [None]
